FAERS Safety Report 16634189 (Version 1)
Quarter: 2019Q3

REPORT INFORMATION
  Report Type: Report from Study
  Country: None (occurrence: US)
  Receive Date: 20190726
  Receipt Date: 20190726
  Transmission Date: 20191004
  Serious: Yes (Other)
  Sender: FDA-Public Use
  Company Number: US-ABBVIE-19K-163-2841107-00

PATIENT
  Age: 74 Year
  Sex: Female
  Weight: 72.64 kg

DRUGS (8)
  1. NAPROXEN. [Concomitant]
     Active Substance: NAPROXEN
     Indication: PRODUCT USED FOR UNKNOWN INDICATION
  2. HUMIRA [Suspect]
     Active Substance: ADALIMUMAB
     Indication: RHEUMATOID ARTHRITIS
     Route: 058
     Dates: start: 2009, end: 2013
  3. METHOTREXATE. [Concomitant]
     Active Substance: METHOTREXATE
     Indication: RHEUMATOID ARTHRITIS
  4. PLAQUENIL [Concomitant]
     Active Substance: HYDROXYCHLOROQUINE SULFATE
     Indication: THYROID GLAND INJURY
  5. CALCIUM WITH D3 [Concomitant]
     Indication: PRODUCT USED FOR UNKNOWN INDICATION
  6. HUMIRA [Suspect]
     Active Substance: ADALIMUMAB
     Route: 058
     Dates: start: 201808
  7. FOLIC ACID. [Concomitant]
     Active Substance: FOLIC ACID
     Indication: ADVERSE DRUG REACTION
  8. LEFLUNOMIDE. [Concomitant]
     Active Substance: LEFLUNOMIDE
     Indication: RHEUMATOID ARTHRITIS

REACTIONS (16)
  - Haematocrit decreased [Unknown]
  - Arthralgia [Recovered/Resolved]
  - Depression [Recovered/Resolved]
  - Macrocytosis [Not Recovered/Not Resolved]
  - Mean cell volume increased [Unknown]
  - Red blood cell count decreased [Unknown]
  - Breast cancer female [Recovered/Resolved]
  - Gait disturbance [Recovered/Resolved]
  - Red cell distribution width increased [Unknown]
  - Pain [Recovering/Resolving]
  - Peripheral swelling [Recovered/Resolved]
  - Osteoporosis [Not Recovered/Not Resolved]
  - Haemoglobin decreased [Unknown]
  - Neuropathy peripheral [Recovered/Resolved]
  - Osteoporosis [Not Recovered/Not Resolved]
  - White blood cell count decreased [Unknown]

NARRATIVE: CASE EVENT DATE: 2013
